FAERS Safety Report 14951900 (Version 1)
Quarter: 2018Q2

REPORT INFORMATION
  Report Type: Spontaneous
  Country: DE (occurrence: DE)
  Receive Date: 20180530
  Receipt Date: 20180530
  Transmission Date: 20180711
  Serious: Yes (Hospitalization)
  Sender: FDA-Public Use
  Company Number: IND-DE-009507513-1805DEU008723

PATIENT
  Age: 72 Year
  Sex: Male

DRUGS (10)
  1. ARCOXIA [Suspect]
     Active Substance: ETORICOXIB
     Dosage: 90 MG, 1-0-0-0
  2. HYDROCHLOROTHIAZIDE. [Concomitant]
     Active Substance: HYDROCHLOROTHIAZIDE
     Dosage: 12 MG, 1-0-0-0
  3. LEVETIRACETAM. [Concomitant]
     Active Substance: LEVETIRACETAM
     Dosage: 750 MG, 1-0-1-0
  4. LEVOTHYROXINE SODIUM. [Concomitant]
     Active Substance: LEVOTHYROXINE SODIUM
     Dosage: 50 ?G, 1-0-0-0
  5. MOVICOL [Concomitant]
     Active Substance: POLYETHYLENE GLYCOL 3350\POTASSIUM CHLORIDE\SODIUM BICARBONATE\SODIUM CHLORIDE
     Dosage: NK MG, AS NEEDED
  6. METAMIZOL [Concomitant]
     Active Substance: METAMIZOLE SODIUM
     Dosage: 500 MG, 2-2-2-2
  7. SANDOCAL (CALCIUM CARBONATE (+) CALCIUM GLUCONATE (+) CALCIUM LACTATE) [Concomitant]
     Dosage: NK MG, 0-1-0-0
  8. RAMIPRIL. [Concomitant]
     Active Substance: RAMIPRIL
     Dosage: 5 MG, 1-0-0-0
  9. PANTOPRAZOLE [Concomitant]
     Active Substance: PANTOPRAZOLE
     Dosage: 40 MG, 0-0-1-0
  10. BEZAFIBRATE [Concomitant]
     Active Substance: BEZAFIBRATE
     Dosage: 400 MG, 0-0-1-0

REACTIONS (4)
  - Haematochezia [Unknown]
  - Abdominal pain lower [Unknown]
  - Drug prescribing error [Unknown]
  - Dyschezia [Unknown]
